FAERS Safety Report 9148293 (Version 1)
Quarter: 2013Q1

REPORT INFORMATION
  Report Type: Spontaneous
  Country: US (occurrence: None)
  Receive Date: 20130228
  Receipt Date: 20130228
  Transmission Date: 20140127
  Serious: No
  Sender: FDA-Public Use
  Company Number: None

PATIENT
  Age: 62 None
  Sex: Male

DRUGS (1)
  1. TRUVADA [Suspect]
     Route: 048
     Dates: start: 20120227

REACTIONS (2)
  - Rash [None]
  - Depression [None]
